FAERS Safety Report 23909774 (Version 1)
Quarter: 2024Q2

REPORT INFORMATION
  Report Type: Spontaneous
  Country: US (occurrence: US)
  Receive Date: 20240528
  Receipt Date: 20240528
  Transmission Date: 20240716
  Serious: No
  Sender: FDA-Public Use
  Company Number: US-PERRIGO-23US009068

PATIENT
  Age: 76 Year
  Sex: Female
  Weight: 63.492 kg

DRUGS (5)
  1. MINOXIDIL [Suspect]
     Active Substance: MINOXIDIL
     Indication: Alopecia
     Dosage: UNK, BID
     Route: 061
     Dates: start: 202306, end: 202306
  2. MINOXIDIL [Suspect]
     Active Substance: MINOXIDIL
     Indication: Stress
  3. FLUCONAZOLE [Concomitant]
     Active Substance: FLUCONAZOLE
     Indication: Lip injury
     Dosage: ONCE MONTHLY
     Route: 048
     Dates: start: 1993
  4. SYMBICORT [Concomitant]
     Active Substance: BUDESONIDE\FORMOTEROL FUMARATE DIHYDRATE
     Indication: Chronic obstructive pulmonary disease
     Dosage: UNK
     Route: 065
     Dates: start: 1993
  5. COMBIVENT [Concomitant]
     Active Substance: ALBUTEROL SULFATE\IPRATROPIUM BROMIDE
     Indication: Chronic obstructive pulmonary disease
     Dosage: UNK
     Route: 065
     Dates: start: 1993

REACTIONS (4)
  - Joint swelling [Recovering/Resolving]
  - Inappropriate schedule of product administration [Recovering/Resolving]
  - Wrong technique in product usage process [Recovering/Resolving]
  - Off label use [Recovering/Resolving]

NARRATIVE: CASE EVENT DATE: 20230601
